FAERS Safety Report 5388914-X (Version None)
Quarter: 2007Q3

REPORT INFORMATION
  Report Type: 
  Country: None (occurrence: None)
  Receive Date: 20070717
  Receipt Date: 20070706
  Transmission Date: 20080115
  Serious: Yes (Hospitalization)
  Sender: FDA-Public Use
  Company Number: PHEH2007US09635

PATIENT
  Age: 83 Year
  Sex: Male

DRUGS (8)
  1. EXJADE [Suspect]
     Indication: HAEMOCHROMATOSIS
     Dosage: 2000 MG, QD
     Route: 048
  2. EXJADE [Suspect]
     Dosage: 1500 MG, QD
     Route: 048
     Dates: start: 20070630, end: 20070706
  3. EXJADE [Suspect]
     Dosage: 1000 MG, QD
     Route: 048
     Dates: start: 20070706
  4. PROCRIT [Concomitant]
     Indication: MYELOPROLIFERATIVE DISORDER
     Dosage: UNK, QW
  5. ATENOLOL [Concomitant]
  6. REMERON [Concomitant]
  7. IPRATROPIUM BROMIDE [Concomitant]
  8. NEUPOGEN [Concomitant]
     Indication: MYELOPROLIFERATIVE DISORDER

REACTIONS (15)
  - BLOOD ALBUMIN DECREASED [None]
  - BLOOD BILIRUBIN INCREASED [None]
  - BLOOD CREATININE INCREASED [None]
  - COMPUTERISED TOMOGRAM ABNORMAL [None]
  - HAEMATOCRIT DECREASED [None]
  - HAEMOGLOBIN DECREASED [None]
  - NEPHROSTOMY [None]
  - PLATELET COUNT DECREASED [None]
  - PYELONEPHRITIS [None]
  - PYREXIA [None]
  - RED BLOOD CELL COUNT DECREASED [None]
  - RENAL FAILURE ACUTE [None]
  - SERUM FERRITIN INCREASED [None]
  - URINARY TRACT INFECTION [None]
  - WHITE BLOOD CELL COUNT INCREASED [None]
